FAERS Safety Report 25845590 (Version 1)
Quarter: 2025Q3

REPORT INFORMATION
  Report Type: Spontaneous
  Country: EU (occurrence: EU)
  Receive Date: 20250925
  Receipt Date: 20250925
  Transmission Date: 20251021
  Serious: Yes (Other)
  Sender: AUROBINDO
  Company Number: EU-AFSSAPS-AVMP2025000222

PATIENT
  Age: 48 Year
  Sex: Female

DRUGS (2)
  1. SERTRALINE [Suspect]
     Active Substance: SERTRALINE HYDROCHLORIDE
     Indication: Product used for unknown indication
     Route: 045
     Dates: start: 20250323
  2. COCAINE [Suspect]
     Active Substance: COCAINE
     Indication: Product used for unknown indication
     Route: 045
     Dates: start: 20250323

REACTIONS (3)
  - Substance use disorder [Unknown]
  - Nasal congestion [Recovered/Resolved]
  - Suspected product tampering [Recovered/Resolved]

NARRATIVE: CASE EVENT DATE: 20250323
